FAERS Safety Report 24935702 (Version 1)
Quarter: 2025Q1

REPORT INFORMATION
  Report Type: Report from Study
  Country: US (occurrence: US)
  Receive Date: 20250206
  Receipt Date: 20250206
  Transmission Date: 20250409
  Serious: Yes (Other)
  Sender: EXELIXIS
  Company Number: US-EXELIXIS-CABO-24080392

PATIENT
  Sex: Male

DRUGS (2)
  1. CABOMETYX [Suspect]
     Active Substance: CABOZANTINIB S-MALATE
     Indication: Renal cell carcinoma
     Dosage: 40 MG, QD
     Route: 048
  2. CABOMETYX [Suspect]
     Active Substance: CABOZANTINIB S-MALATE
     Dosage: 20 MG, QD
     Route: 048

REACTIONS (9)
  - Metastases to bone [Unknown]
  - Diarrhoea [Not Recovered/Not Resolved]
  - Blister [Unknown]
  - Stomatitis [Unknown]
  - Blood pressure increased [Unknown]
  - Fatigue [Unknown]
  - Oral disorder [Unknown]
  - Pain [Not Recovered/Not Resolved]
  - Dry mouth [Unknown]
